FAERS Safety Report 6902337-0 (Version None)
Quarter: 2010Q3

REPORT INFORMATION
  Report Type: 
  Country: None (occurrence: None)
  Receive Date: 20100803
  Receipt Date: 20080512
  Transmission Date: 20110219
  Serious: No
  Sender: FDA-Public Use
  Company Number: US-PFIZER INC-2008040810

PATIENT
  Sex: Male
  Weight: 81.6 kg

DRUGS (4)
  1. LYRICA [Suspect]
     Indication: HYPOAESTHESIA
     Route: 048
     Dates: start: 20080401
  2. CORTICOSTEROIDS [Concomitant]
  3. VELCADE [Concomitant]
  4. REVLIMID [Concomitant]

REACTIONS (1)
  - HYPOAESTHESIA [None]
